FAERS Safety Report 5637789-X (Version None)
Quarter: 2008Q1

REPORT INFORMATION
  Report Type: 
  Country: None (occurrence: None)
  Receive Date: 20080219
  Receipt Date: 20080206
  Transmission Date: 20080703
  Serious: Yes (Other)
  Sender: FDA-Public Use
  Company Number: 2008S1000954

PATIENT
  Age: 84 Year
  Sex: Male

DRUGS (9)
  1. FLEET MINERAL OIL ENEMA [Suspect]
     Indication: CONSTIPATION
     Dosage: 133 ML;X1;RTL
     Route: 054
     Dates: start: 20080206, end: 20080206
  2. TENORMIN [Concomitant]
  3. LOPID [Concomitant]
  4. PRAVACHOL [Concomitant]
  5. METFORMIN HCL [Concomitant]
  6. GLUCOTROL [Concomitant]
  7. ASPIRIN [Concomitant]
  8. LISINOPRIL [Concomitant]
  9. IRON [Concomitant]

REACTIONS (2)
  - ABDOMINAL PAIN [None]
  - DRUG INEFFECTIVE [None]
